FAERS Safety Report 6782863-8 (Version None)
Quarter: 2010Q2

REPORT INFORMATION
  Report Type: 
  Country: None (occurrence: None)
  Receive Date: 20100617
  Receipt Date: 20100604
  Transmission Date: 20101027
  Serious: Yes (Death, Hospitalization)
  Sender: FDA-Public Use
  Company Number: 2009AC000047

PATIENT
  Age: 75 Year
  Sex: Female
  Weight: 46.7205 kg

DRUGS (73)
  1. DIGOXIN [Suspect]
     Dosage: 0.125 MG; QD PO
     Route: 048
     Dates: start: 19960301, end: 20080201
  2. DIGOXIN [Suspect]
     Indication: HYPERTENSIVE HEART DISEASE
     Dosage: .125 MG; QD; PO
     Route: 048
     Dates: start: 19960301, end: 19991201
  3. DIGOXIN [Suspect]
     Indication: ATRIAL FIBRILLATION
     Dosage: .125 MG; QD; PO
     Route: 048
     Dates: start: 20000501, end: 20050101
  4. DIGOXIN [Suspect]
     Dosage: .125 MG; BIW; PO
     Route: 048
     Dates: start: 20051001, end: 20080201
  5. DIGOXIN [Suspect]
     Indication: ATRIAL FLUTTER
     Dosage: 0.125 MG; QD; PO
     Route: 048
     Dates: start: 19960301, end: 19991201
  6. DIGOXIN [Suspect]
     Indication: ATRIAL FLUTTER
     Dosage: 0.125 MG; QD; PO
     Route: 048
     Dates: start: 20000401, end: 20051001
  7. DIGOXIN [Suspect]
     Dosage: 0.125 MG; BIW; PO
     Route: 048
     Dates: start: 20051001, end: 20080315
  8. DIGOXIN [Suspect]
     Dosage: 0.25 MG; ; PO
     Route: 048
     Dates: start: 20080315, end: 20080315
  9. FUROSEMIDE [Concomitant]
  10. MECLIZINE [Concomitant]
  11. ALPRAZOLAM [Concomitant]
  12. XALATAN [Concomitant]
  13. TIMOLOL MALEATE [Concomitant]
  14. ALLOPURINOL [Concomitant]
  15. ATACAND HCT [Concomitant]
  16. VITAPLEX [Concomitant]
  17. DILTIAZEM HCL [Concomitant]
  18. RENAX [Concomitant]
  19. AVANDIA [Concomitant]
  20. VITAMIN D [Concomitant]
  21. AMOXICILLIN [Concomitant]
  22. RENAGEL [Concomitant]
  23. ACTOS [Concomitant]
  24. ARANESP [Concomitant]
  25. IRON [Concomitant]
  26. LASIX [Concomitant]
  27. LIPITOR [Concomitant]
  28. QUINIDINE HCL [Concomitant]
  29. VITAMIN D2 [Concomitant]
  30. TIMOLOL MALEATE OPHTHALMIC [Concomitant]
  31. ARANESP [Concomitant]
  32. RENAX [Concomitant]
  33. VITAMIN D [Concomitant]
  34. IRON [Concomitant]
  35. LIPITOR [Concomitant]
  36. DILTIAZEM [Concomitant]
  37. FUROSEMIDE [Concomitant]
  38. ARANESP [Concomitant]
  39. ALLOPURINOL [Concomitant]
  40. LIPITOR [Concomitant]
  41. FUROSEMIDE [Concomitant]
  42. DILTIAZEM [Concomitant]
  43. ALPRAZOLAM [Concomitant]
  44. VITAMIN D [Concomitant]
  45. IRON [Concomitant]
  46. ACTOS [Concomitant]
  47. LEVAQUIN [Concomitant]
  48. TESSALON [Concomitant]
  49. PREMARIN [Concomitant]
  50. ALBUTEROL [Concomitant]
  51. NORVASC [Concomitant]
  52. FLOVENT [Concomitant]
  53. TORADOL [Concomitant]
  54. CARDIZEM [Concomitant]
  55. VASOTEC [Concomitant]
  56. DOPAMINE HCL [Concomitant]
  57. COZAAR [Concomitant]
  58. HUMIBID [Concomitant]
  59. PERCOCET [Concomitant]
  60. NEURONTIN [Concomitant]
  61. TEGRETOL [Concomitant]
  62. PAXIL [Concomitant]
  63. AMITRIPTYLINE [Concomitant]
  64. NATRECOR [Concomitant]
  65. ZOLPIDEM [Concomitant]
  66. BECONASE [Concomitant]
  67. GUAIFENESIN [Concomitant]
  68. PROVENTIL [Concomitant]
  69. ATROVENT [Concomitant]
  70. CIPROFLOXACIN [Concomitant]
  71. PULMICORT [Concomitant]
  72. PENLAC [Concomitant]
  73. CEFTIN [Concomitant]

REACTIONS (40)
  - ADHESION [None]
  - ANHEDONIA [None]
  - ATRIAL FIBRILLATION [None]
  - ATRIAL FLUTTER [None]
  - BACK PAIN [None]
  - BRADYCARDIA [None]
  - CARDIAC FAILURE CONGESTIVE [None]
  - CARPAL TUNNEL SYNDROME [None]
  - CONDITION AGGRAVATED [None]
  - DEPRESSION [None]
  - DIALYSIS [None]
  - DIARRHOEA [None]
  - DRUG LEVEL BELOW THERAPEUTIC [None]
  - EMOTIONAL DISTRESS [None]
  - HAEMORRHOIDS [None]
  - HYDRONEPHROSIS [None]
  - HYPERTENSIVE HEART DISEASE [None]
  - INJURY [None]
  - INSOMNIA [None]
  - INTENTIONAL SELF-INJURY [None]
  - MENTAL DISORDER [None]
  - MITRAL VALVE INCOMPETENCE [None]
  - MYOCARDIAL INFARCTION [None]
  - NEPHROLITHIASIS [None]
  - OBSTRUCTIVE AIRWAYS DISORDER [None]
  - PAIN [None]
  - PNEUMONIA [None]
  - PULMONARY CONGESTION [None]
  - PULMONARY OEDEMA [None]
  - RENAL FAILURE ACUTE [None]
  - RESPIRATORY DISTRESS [None]
  - RESPIRATORY FAILURE [None]
  - RESTRICTIVE PULMONARY DISEASE [None]
  - SICK SINUS SYNDROME [None]
  - SINUSITIS [None]
  - THERAPEUTIC AGENT TOXICITY [None]
  - TINNITUS [None]
  - UNEVALUABLE EVENT [None]
  - VISION BLURRED [None]
  - WEIGHT DECREASED [None]
